FAERS Safety Report 5040596-2 (Version None)
Quarter: 2006Q2

REPORT INFORMATION
  Report Type: 
  Country: None (occurrence: None)
  Receive Date: 20060627
  Receipt Date: 20060627
  Transmission Date: 20061013
  Serious: Yes (Hospitalization)
  Sender: FDA-Public Use
  Company Number: None

PATIENT
  Sex: Female
  Weight: 113.2632 kg

DRUGS (5)
  1. LEVAQUIN [Suspect]
     Indication: ASTHMA
     Dosage: 500 MG X1 IV
     Route: 042
     Dates: start: 20060312, end: 20060312
  2. LEVAQUIN [Suspect]
     Indication: CHRONIC OBSTRUCTIVE PULMONARY DISEASE
     Dosage: 500 MG X1 IV
     Route: 042
     Dates: start: 20060312, end: 20060312
  3. ALBUTEROL SPIROS [Concomitant]
  4. DUONEB [Concomitant]
  5. SOLU-MEDROL [Concomitant]

REACTIONS (1)
  - INFUSION SITE URTICARIA [None]
